FAERS Safety Report 18736123 (Version 2)
Quarter: 2021Q1

REPORT INFORMATION
  Report Type: Spontaneous
  Country: RU (occurrence: RU)
  Receive Date: 20210113
  Receipt Date: 20210216
  Transmission Date: 20210419
  Serious: Yes (Hospitalization)
  Sender: FDA-Public Use
  Company Number: RU-LUPIN PHARMACEUTICALS INC.-2020-11760

PATIENT
  Sex: Male

DRUGS (7)
  1. BETAMETHASONE. [Suspect]
     Active Substance: BETAMETHASONE
     Indication: DERMATITIS ATOPIC
     Dosage: UNK
     Route: 061
  2. PANCREATIN [Suspect]
     Active Substance: PANCRELIPASE
     Indication: DERMATITIS ATOPIC
     Dosage: UNK
     Route: 065
  3. POLYMETHYLSILOXANE POLYHYDRATE [DEVICE] [Suspect]
     Active Substance: DEVICE
     Indication: DERMATITIS ATOPIC
     Dosage: UNK
     Route: 065
  4. MOMETASONE FUROATE. [Suspect]
     Active Substance: MOMETASONE FUROATE
     Indication: DERMATITIS ATOPIC
     Dosage: UNK
     Route: 061
  5. METHYLPREDNISOLONE. [Suspect]
     Active Substance: METHYLPREDNISOLONE
     Indication: DERMATITIS ATOPIC
     Dosage: UNK
     Route: 061
  6. DIOCTAHEDRAL SMECTITE [Suspect]
     Active Substance: MONTMORILLONITE
     Indication: DERMATITIS ATOPIC
     Dosage: UNK
     Route: 065
  7. CETIRIZINE [Suspect]
     Active Substance: CETIRIZINE HYDROCHLORIDE
     Indication: DERMATITIS ATOPIC
     Dosage: UNK
     Route: 065

REACTIONS (1)
  - Multiple-drug resistance [Unknown]
